FAERS Safety Report 7355889-3 (Version None)
Quarter: 2011Q1

REPORT INFORMATION
  Report Type: 
  Country: None (occurrence: None)
  Receive Date: 20110307
  Receipt Date: 20110222
  Transmission Date: 20110831
  Serious: Yes (Death, Hospitalization, Other)
  Sender: FDA-Public Use
  Company Number: 2011BI006769

PATIENT
  Age: 63 Year
  Sex: Male
  Weight: 84.6 kg

DRUGS (9)
  1. ZEVALIN [Suspect]
     Indication: MULTIPLE MYELOMA
     Dosage: 1X;IV
     Route: 042
     Dates: start: 20100921, end: 20100929
  2. RITUXIMAB [Concomitant]
  3. DEXAMETHASONE [Concomitant]
  4. DOXORUBICIN [Concomitant]
  5. THALIDOMIDE [Concomitant]
  6. VELCADE [Concomitant]
  7. REVILIMD [Concomitant]
  8. VELCADE [Concomitant]
  9. DOXORUBICIN [Concomitant]

REACTIONS (11)
  - FALL [None]
  - ASCITES [None]
  - RENAL TUBULAR NECROSIS [None]
  - SUBDURAL HAEMATOMA [None]
  - HYPOTENSION [None]
  - HAEMOGLOBIN DECREASED [None]
  - HEPATIC FAILURE [None]
  - PLATELET COUNT DECREASED [None]
  - RENAL FAILURE ACUTE [None]
  - VENOOCCLUSIVE LIVER DISEASE [None]
  - DIALYSIS [None]
